FAERS Safety Report 16379223 (Version 1)
Quarter: 2019Q2

REPORT INFORMATION
  Report Type: Spontaneous
  Country: AT (occurrence: AT)
  Receive Date: 20190531
  Receipt Date: 20190531
  Transmission Date: 20190711
  Serious: Yes (Hospitalization)
  Sender: FDA-Public Use
  Company Number: AT-TEVA-2019-AT-1056800

PATIENT
  Age: 48 Year
  Sex: Female

DRUGS (4)
  1. DICLOBENE 75 MG - AMPULLEN [Suspect]
     Active Substance: DICLOFENAC SODIUM
     Indication: ARTHRALGIA
     Route: 042
     Dates: start: 20180917, end: 20180917
  2. NOVALGIN (METAMIZOLE SODIUM) [Suspect]
     Active Substance: METAMIZOLE SODIUM
     Route: 042
     Dates: start: 20180917, end: 20180917
  3. PRAM 20 MG-FILMTABLETTEN [Concomitant]
     Route: 048
  4. EUTHYROX100 MIKROGRAMM-TABLETTEN [Concomitant]
     Route: 048

REACTIONS (4)
  - Angioedema [Recovered/Resolved]
  - Type I hypersensitivity [Recovered/Resolved]
  - Dyspnoea [Recovered/Resolved]
  - Leukocytosis [Recovered/Resolved]

NARRATIVE: CASE EVENT DATE: 20180917
